FAERS Safety Report 4494081-7 (Version None)
Quarter: 2004Q4

REPORT INFORMATION
  Report Type: 
  Country: None (occurrence: None)
  Receive Date: 20041102
  Receipt Date: 20041018
  Transmission Date: 20050328
  Serious: Yes (Other)
  Sender: FDA-Public Use
  Company Number: US_0410107180

PATIENT
  Age: 51 Year
  Sex: Female
  Weight: 91 kg

DRUGS (13)
  1. ZYPREXA [Suspect]
     Indication: BIPOLAR DISORDER
     Dosage: 15 MG/2 DAY
     Dates: start: 20020712, end: 20040101
  2. PAXIL [Concomitant]
  3. CELEBREX [Concomitant]
  4. PREMARIN [Concomitant]
  5. ZANTAC [Concomitant]
  6. BEXTRA [Concomitant]
  7. POTASSIUM [Concomitant]
  8. ERYTHROMYCIN [Concomitant]
  9. TIMOLOL MALEATE [Concomitant]
  10. LOTRISONE [Concomitant]
  11. XENICAL [Concomitant]
  12. LASIX [Concomitant]
  13. FAMVIR (PENCICLOVIR) [Concomitant]

REACTIONS (27)
  - ARTHRITIS [None]
  - BASAL CELL CARCINOMA [None]
  - BLISTER [None]
  - BLOOD CHOLESTEROL ABNORMAL [None]
  - BLOOD TRIGLYCERIDES INCREASED [None]
  - CONDITION AGGRAVATED [None]
  - DEPRESSION [None]
  - DIARRHOEA [None]
  - DYSPHAGIA [None]
  - GASTROINTESTINAL PAIN [None]
  - GASTROOESOPHAGEAL REFLUX DISEASE [None]
  - GLAUCOMA [None]
  - GLYCOSURIA [None]
  - HYPERGLYCAEMIA [None]
  - HYPERPHAGIA [None]
  - HYPERTENSION [None]
  - HYPOGLYCAEMIA [None]
  - IRRITABILITY [None]
  - OBESITY [None]
  - OEDEMA [None]
  - POLYDIPSIA [None]
  - POLYURIA [None]
  - PYREXIA [None]
  - RASH [None]
  - RESTLESSNESS [None]
  - TACHYCARDIA [None]
  - WEIGHT INCREASED [None]
